FAERS Safety Report 5517970-0 (Version None)
Quarter: 2007Q4

REPORT INFORMATION
  Report Type: 
  Country: None (occurrence: None)
  Receive Date: 20071115
  Receipt Date: 20071105
  Transmission Date: 20080405
  Serious: No
  Sender: FDA-Public Use
  Company Number: PHHO2007BE17758

PATIENT
  Sex: Female

DRUGS (1)
  1. NEORAL [Suspect]
     Indication: PSORIASIS
     Dates: end: 20071003

REACTIONS (4)
  - GINGIVAL HYPERTROPHY [None]
  - PRURITUS [None]
  - PSORIASIS [None]
  - WEIGHT INCREASED [None]
